FAERS Safety Report 5732773-X (Version None)
Quarter: 2008Q2

REPORT INFORMATION
  Report Type: 
  Country: None (occurrence: None)
  Receive Date: 20080507
  Receipt Date: 20080507
  Transmission Date: 20081010
  Serious: No
  Sender: FDA-Public Use
  Company Number: None

PATIENT
  Sex: Female
  Weight: 85.2762 kg

DRUGS (1)
  1. LEXAPRO [Suspect]
     Dosage: ONE DAILY PO
     Route: 048

REACTIONS (1)
  - TARDIVE DYSKINESIA [None]
